FAERS Safety Report 23173740 (Version 1)
Quarter: 2023Q4

REPORT INFORMATION
  Report Type: Spontaneous
  Country: DE (occurrence: DE)
  Receive Date: 20231111
  Receipt Date: 20231111
  Transmission Date: 20240109
  Serious: Yes (Other)
  Sender: FDA-Public Use
  Company Number: DE-002147023-NVSC2023DE239510

PATIENT
  Age: 15 Year

DRUGS (1)
  1. CANAKINUMAB [Suspect]
     Active Substance: CANAKINUMAB
     Indication: Blau syndrome
     Dosage: UNK
     Route: 065

REACTIONS (5)
  - Granulomatous liver disease [Unknown]
  - Takayasu^s arteritis [Unknown]
  - Disease progression [Unknown]
  - Transaminases increased [Unknown]
  - Product use in unapproved indication [Unknown]
